FAERS Safety Report 5934278-X (Version None)
Quarter: 2008Q4

REPORT INFORMATION
  Report Type: 
  Country: None (occurrence: None)
  Receive Date: 20081029
  Receipt Date: 20081020
  Transmission Date: 20090506
  Serious: Yes (Hospitalization, Other)
  Sender: FDA-Public Use
  Company Number: PHHY2008BR25478

PATIENT
  Age: 42 Year
  Sex: Female

DRUGS (2)
  1. FORASEQ [Suspect]
     Indication: ASTHMA
     Dosage: 1 DF, BID
  2. BUDESONIDE [Suspect]
     Indication: ASTHMA
     Route: 045

REACTIONS (7)
  - ABDOMINAL PAIN UPPER [None]
  - ARTHRALGIA [None]
  - EATING DISORDER [None]
  - OESOPHAGEAL CANDIDIASIS [None]
  - OROPHARYNGEAL PAIN [None]
  - RASH PAPULAR [None]
  - TONGUE DISCOLOURATION [None]
